FAERS Safety Report 6142319-2 (Version None)
Quarter: 2009Q2

REPORT INFORMATION
  Report Type: 
  Country: None (occurrence: None)
  Receive Date: 20090403
  Receipt Date: 20071003
  Transmission Date: 20091009
  Serious: No
  Sender: FDA-Public Use
  Company Number: US-ASTRAZENECA-2007UW07692

PATIENT
  Age: 26511 Day
  Sex: Male
  Weight: 70.5 kg

DRUGS (18)
  1. SEROQUEL [Suspect]
     Indication: BIPOLAR DISORDER
     Dosage: 25-50 MG
     Route: 048
     Dates: start: 19990801, end: 20000101
  2. RISPERDAL [Concomitant]
     Indication: BIPOLAR DISORDER
     Dates: start: 19990701, end: 19990801
  3. ZYPREXA [Concomitant]
     Indication: BIPOLAR DISORDER
     Dosage: 2.5-500 MG
     Dates: start: 19990709, end: 19990730
  4. VALPROIC ACID [Concomitant]
     Dates: start: 20020901
  5. WELLBUTRIN [Concomitant]
  6. NEURONTIN [Concomitant]
  7. ESKALITH [Concomitant]
  8. LIPITOR [Concomitant]
  9. CELEBREX [Concomitant]
  10. LANOXIN [Concomitant]
  11. CREON [Concomitant]
  12. HTZ [Concomitant]
  13. SYNTHROID [Concomitant]
  14. GLIPIZIDE [Concomitant]
  15. WARFARIN SODIUM [Concomitant]
  16. METAMUCIL [Concomitant]
  17. DEPAKOTE [Concomitant]
  18. VENLAFAXINE [Concomitant]

REACTIONS (12)
  - ANHEDONIA [None]
  - ANXIETY [None]
  - BALANCE DISORDER [None]
  - DEPRESSED MOOD [None]
  - DIABETES MELLITUS [None]
  - GLYCOSURIA [None]
  - HYPERGLYCAEMIA [None]
  - IRRITABILITY [None]
  - MEMORY IMPAIRMENT [None]
  - MOOD SWINGS [None]
  - NEUROPATHY PERIPHERAL [None]
  - TREMOR [None]
